FAERS Safety Report 9310340 (Version 6)
Quarter: 2015Q2

REPORT INFORMATION
  Report Type: Spontaneous
  Country: US (occurrence: US)
  Receive Date: 20130527
  Receipt Date: 20150414
  Transmission Date: 20150821
  Serious: Yes (Other)
  Sender: FDA-Public Use
  Company Number: US-PFIZER INC-2013159474

PATIENT
  Age: 65 Year
  Sex: Male

DRUGS (3)
  1. DILANTIN-125 [Suspect]
     Active Substance: PHENYTOIN
     Indication: SYNCOPE
  2. DILANTIN [Suspect]
     Active Substance: PHENYTOIN
     Indication: SEIZURE
     Dosage: 400 MG, 1X/DAY (100 MG FOUR CAPSULES AT BEDTIME)
     Route: 048
     Dates: start: 20030328
  3. DILANTIN-125 [Suspect]
     Active Substance: PHENYTOIN
     Indication: SEIZURE
     Dosage: 200 MG, 2X/DAY
     Dates: start: 1950, end: 2008

REACTIONS (2)
  - Stevens-Johnson syndrome [Unknown]
  - Cerebral atrophy [Unknown]

NARRATIVE: CASE EVENT DATE: 20080129
